FAERS Safety Report 14080417 (Version 2)
Quarter: 2017Q4

REPORT INFORMATION
  Report Type: Report from Study
  Country: US (occurrence: US)
  Receive Date: 20171012
  Receipt Date: 20171027
  Transmission Date: 20180321
  Serious: Yes (Hospitalization, Other)
  Sender: FDA-Public Use
  Company Number: US-BAYER-2017-149251

PATIENT
  Age: 55 Year
  Sex: Male

DRUGS (4)
  1. NEXAVAR [Suspect]
     Active Substance: SORAFENIB
     Indication: HEPATOCELLULAR CARCINOMA
     Dosage: 200 MG, BID
     Route: 048
     Dates: start: 20171017
  2. NEXAVAR [Suspect]
     Active Substance: SORAFENIB
     Indication: HEPATOCELLULAR CARCINOMA
     Dosage: 200 MG, BID
     Route: 048
     Dates: start: 20170723, end: 2017
  3. NEXAVAR [Suspect]
     Active Substance: SORAFENIB
     Indication: HEPATOCELLULAR CARCINOMA
     Dosage: 400 MG, BID
     Route: 048
     Dates: start: 2017, end: 2017
  4. NEXAVAR [Suspect]
     Active Substance: SORAFENIB
     Indication: HEPATOCELLULAR CARCINOMA
     Dosage: 200 MG, BID
     Route: 048
     Dates: start: 20170811, end: 20170924

REACTIONS (21)
  - Off label use [None]
  - Weight decreased [None]
  - Diarrhoea [None]
  - Depression [None]
  - Loss of personal independence in daily activities [None]
  - Contusion [None]
  - Myocardial infarction [Unknown]
  - Blister rupture [Recovering/Resolving]
  - Fatigue [None]
  - Dry skin [None]
  - Nausea [None]
  - Vomiting [None]
  - Infected neoplasm [None]
  - Contusion [Recovering/Resolving]
  - Chromaturia [None]
  - Nausea [Recovering/Resolving]
  - Decreased appetite [None]
  - Ear infection [None]
  - Asthenia [None]
  - Myocardial infarction [None]
  - Rash generalised [None]

NARRATIVE: CASE EVENT DATE: 2017
